FAERS Safety Report 4681209-9 (Version None)
Quarter: 2005Q2

REPORT INFORMATION
  Report Type: 
  Country: None (occurrence: None)
  Receive Date: 20050601
  Receipt Date: 20050520
  Transmission Date: 20051028
  Serious: Yes (Hospitalization)
  Sender: FDA-Public Use
  Company Number: 2005-128571-NL

PATIENT
  Age: 17 Year
  Sex: Male

DRUGS (4)
  1. REMERON [Suspect]
     Dosage: 45 MG DAILY
  2. REMERON [Suspect]
     Dosage: 1300 MG DAILY
  3. PROZAC [Suspect]
     Dosage: 80 MG DAILY
  4. CONCERTA [Concomitant]

REACTIONS (4)
  - INTENTIONAL MISUSE [None]
  - OVERDOSE [None]
  - SEROTONIN SYNDROME [None]
  - SUICIDE ATTEMPT [None]
